FAERS Safety Report 10345011 (Version 1)
Quarter: 2014Q3

REPORT INFORMATION
  Report Type: Spontaneous
  Country: US (occurrence: None)
  Receive Date: 20140724
  Receipt Date: 20140724
  Transmission Date: 20150326
  Serious: Yes (Disabling, Other)
  Sender: FDA-Public Use
  Company Number: 2014-20005

PATIENT
  Age: 62 Year
  Sex: Female
  Weight: 90.7 kg

DRUGS (2)
  1. EYLEA [Suspect]
     Active Substance: AFLIBERCEPT
     Indication: AGE-RELATED MACULAR DEGENERATION
     Dosage: UNK, MONTHLY , INTRAOCULAR 01/ 2014 TO UNK THERAPY DATES
     Route: 031
     Dates: start: 2013
  2. CELEBREX [Concomitant]
     Active Substance: CELECOXIB

REACTIONS (4)
  - Retinal detachment [None]
  - Eye haemorrhage [None]
  - Blindness transient [None]
  - Corneal oedema [None]

NARRATIVE: CASE EVENT DATE: 20140715
